FAERS Safety Report 23522135 (Version 1)
Quarter: 2024Q1

REPORT INFORMATION
  Report Type: Spontaneous
  Country: US (occurrence: US)
  Receive Date: 20240214
  Receipt Date: 20240214
  Transmission Date: 20240410
  Serious: No
  Sender: FDA-Public Use
  Company Number: US-HORIZON THERAPEUTICS-HZN-2023-007560

PATIENT

DRUGS (2)
  1. TEPEZZA [Suspect]
     Active Substance: TEPROTUMUMAB-TRBW
     Indication: Product used for unknown indication
     Dosage: UNK (INFUSION 1)
     Route: 042
  2. TEPEZZA [Suspect]
     Active Substance: TEPROTUMUMAB-TRBW
     Dosage: UNK (LAST INFUSION)
     Route: 042
     Dates: start: 20230414

REACTIONS (9)
  - Parosmia [Unknown]
  - Taste disorder [Unknown]
  - Onychomalacia [Unknown]
  - Onychoclasis [Unknown]
  - Dry skin [Unknown]
  - Fatigue [Unknown]
  - Muscle spasms [Unknown]
  - Vision blurred [Unknown]
  - Hypoacusis [Unknown]
